FAERS Safety Report 4909164-4 (Version None)
Quarter: 2006Q1

REPORT INFORMATION
  Report Type: 
  Country: None (occurrence: None)
  Receive Date: 20060213
  Receipt Date: 20051220
  Transmission Date: 20060701
  Serious: Yes (Death)
  Sender: FDA-Public Use
  Company Number: US-BRISTOL-MYERS SQUIBB COMPANY-13224365

PATIENT
  Sex: Female

DRUGS (1)
  1. TAXOL [Suspect]

REACTIONS (1)
  - MALIGNANT NEOPLASM PROGRESSION [None]
